FAERS Safety Report 8198070-0 (Version None)
Quarter: 2012Q1

REPORT INFORMATION
  Report Type: 
  Country: None (occurrence: None)
  Receive Date: 20120309
  Receipt Date: 20120208
  Transmission Date: 20120608
  Serious: No
  Sender: FDA-Public Use
  Company Number: US-AMGEN-USASP2011008533

PATIENT
  Age: 81 Year
  Sex: Female

DRUGS (8)
  1. LISINOPRIL [Concomitant]
  2. DETROL                             /01350201/ [Concomitant]
  3. ASPIRIN [Concomitant]
     Dosage: UNK
  4. PROLIA [Suspect]
     Indication: OSTEOPOROSIS POSTMENOPAUSAL
     Dosage: 60 ML, Q6MO
     Route: 058
     Dates: start: 20110207
  5. VITAMIN D [Concomitant]
  6. PROLIA [Suspect]
     Dosage: 60 ML, Q6MO
     Route: 058
     Dates: start: 20110916
  7. CARVEDILOL [Concomitant]
  8. LEVOTHYROXINE SODIUM [Concomitant]

REACTIONS (2)
  - MUSCLE SPASMS [None]
  - BACK PAIN [None]
